FAERS Safety Report 6653734-2 (Version None)
Quarter: 2010Q1

REPORT INFORMATION
  Report Type: 
  Country: None (occurrence: None)
  Receive Date: 20100326
  Receipt Date: 20100315
  Transmission Date: 20100710
  Serious: Yes (Other)
  Sender: FDA-Public Use
  Company Number: NO-BRISTOL-MYERS SQUIBB COMPANY-15027436

PATIENT
  Sex: Female

DRUGS (6)
  1. METFORMIN HCL [Suspect]
  2. ATENOLOL [Suspect]
  3. INSULIN [Suspect]
  4. TELMISARTAN [Suspect]
  5. ERYTHROMYCIN [Suspect]
  6. HYDROCHLOROTHIAZIDE [Suspect]

REACTIONS (5)
  - BLOOD POTASSIUM INCREASED [None]
  - HYPOGLYCAEMIA [None]
  - LACTIC ACIDOSIS [None]
  - RENAL FAILURE ACUTE [None]
  - SINUS BRADYCARDIA [None]
